FAERS Safety Report 5493496-8 (Version None)
Quarter: 2007Q4

REPORT INFORMATION
  Report Type: 
  Country: None (occurrence: None)
  Receive Date: 20071023
  Receipt Date: 20071010
  Transmission Date: 20080405
  Serious: Yes (Hospitalization)
  Sender: FDA-Public Use
  Company Number: US-ELI_LILLY_AND_COMPANY-US200710002936

PATIENT
  Sex: Female
  Weight: 97.506 kg

DRUGS (6)
  1. BYETTA [Suspect]
     Indication: TYPE 2 DIABETES MELLITUS
     Dosage: 5 UG, 2/D
     Route: 058
     Dates: start: 20070601
  2. BYETTA [Suspect]
     Dosage: 10 UG, 2/D
     Route: 058
     Dates: start: 20070701
  3. BYETTA [Suspect]
     Dosage: 5 UG, 2/D
     Route: 058
     Dates: start: 20071001
  4. METFORMIN [Concomitant]
     Indication: TYPE 2 DIABETES MELLITUS
     Dosage: UNK, UNKNOWN
  5. ACTOS [Concomitant]
     Indication: TYPE 2 DIABETES MELLITUS
     Dosage: UNK, UNKNOWN
     Dates: end: 20071001
  6. ALEVE [Concomitant]
     Indication: ARTHRALGIA
     Dosage: UNK, UNKNOWN
     Dates: end: 20070731

REACTIONS (6)
  - GASTRIC ULCER HAEMORRHAGE [None]
  - MELAENA [None]
  - NAUSEA [None]
  - PROCEDURAL PAIN [None]
  - STOMACH DISCOMFORT [None]
  - WEIGHT DECREASED [None]
